FAERS Safety Report 8850348 (Version 1)
Quarter: 2012Q4

REPORT INFORMATION
  Report Type: 
  Country: US (occurrence: US)
  Receive Date: 20121019
  Receipt Date: 20121019
  Transmission Date: 20130627
  Serious: No
  Sender: FDA-Public Use
  Company Number: US-ASTRAZENECA-2012SE79041

PATIENT
  Age: 54 Year
  Sex: Male

DRUGS (9)
  1. NEXIUM [Suspect]
     Route: 048
     Dates: start: 20120312
  2. TOPROL XL [Concomitant]
  3. HYDROCHLOROTHIAZIDE [Concomitant]
  4. ADVAIR DISKUS [Concomitant]
  5. LIPITOR [Concomitant]
  6. PROVENTIL HFA [Concomitant]
  7. PLAVIX [Concomitant]
  8. FLEXERIL [Concomitant]
  9. ASPIRIN [Concomitant]

REACTIONS (2)
  - Dermatitis contact [Unknown]
  - Hyperglycaemia [Unknown]
